APPROVED DRUG PRODUCT: TIMOLOL MALEATE
Active Ingredient: TIMOLOL MALEATE
Strength: EQ 0.5% BASE
Dosage Form/Route: SOLUTION, GEL FORMING/DROPS;OPHTHALMIC
Application: A215733 | Product #002 | TE Code: AB
Applicant: DR REDDYS LABORATORIES LTD
Approved: Sep 22, 2022 | RLD: No | RS: No | Type: RX